FAERS Safety Report 4444706-7 (Version None)
Quarter: 2004Q3

REPORT INFORMATION
  Report Type: 
  Country: None (occurrence: None)
  Receive Date: 20040903
  Receipt Date: 20040825
  Transmission Date: 20050211
  Serious: Yes (Hospitalization)
  Sender: FDA-Public Use
  Company Number: 2004050461

PATIENT
  Sex: Female

DRUGS (4)
  1. LIPITOR [Suspect]
     Indication: DYSLIPIDAEMIA
     Dosage: 10 MG (10 MG, 1 IN 1 D), ORAL
     Route: 048
     Dates: start: 20030701
  2. ATENOLOL [Concomitant]
  3. AMLODIPINE [Concomitant]
  4. CLOXAZOLAM (CLOXAZOLAM) [Concomitant]

REACTIONS (5)
  - CHOLELITHIASIS [None]
  - HEPATIC FIBROSIS [None]
  - HEPATIC STEATOSIS [None]
  - INFLAMMATION LOCALISED [None]
  - POLYCYSTIC LIVER DISEASE [None]
